FAERS Safety Report 4277178-6 (Version None)
Quarter: 2004Q1

REPORT INFORMATION
  Report Type: 
  Country: None (occurrence: None)
  Receive Date: 20040120
  Receipt Date: 20040108
  Transmission Date: 20041129
  Serious: Yes (Hospitalization)
  Sender: FDA-Public Use
  Company Number: FRWYE499608JAN04

PATIENT
  Age: 68 Year
  Sex: Female

DRUGS (13)
  1. OXAZEPAM [Suspect]
     Dosage: ORAL
     Route: 048
     Dates: start: 20030615, end: 20031210
  2. AMAREL (GLIMEPIRIDE,   ,0) [Suspect]
     Dosage: ORAL
     Route: 048
     Dates: start: 20030615, end: 20031210
  3. HYTACAND (CANDESARTAN CILEXETIL/HYDROCHLOROTHIAZIDE,  , 0) [Suspect]
     Dosage: ORAL
     Route: 048
     Dates: start: 20030615, end: 20031210
  4. IBUPROFEN [Suspect]
     Dosage: ORAL
     Route: 048
     Dates: start: 20031127, end: 20031210
  5. LAMALINE (BELLADONNA EXTRACT/CAFFEINE/OPIUM TINCTURE/PARACETAMOL,  ,0) [Suspect]
     Dosage: ORAL
     Route: 048
     Dates: start: 20030615, end: 20031210
  6. NIDREL (NITRENDIPINE,  0,) [Suspect]
     Dosage: ORAL
     Route: 048
     Dates: start: 20030615, end: 20031210
  7. CLONAZEPAM [Concomitant]
     Dosage: ORAL
     Route: 048
     Dates: start: 20031114, end: 20031210
  8. SEROPRAM (CITALOPRAM HYDROBROMIDE,  , 0) [Suspect]
     Dosage: ORAL
     Route: 048
     Dates: start: 20030615, end: 20031210
  9. TAHOR (ATORVASTATIN,   , O) [Suspect]
     Dosage: ORAL
     Route: 048
     Dates: start: 20030615, end: 20031210
  10. TELFAST (FEXOFENADINE,  , 0) [Suspect]
     Dosage: ORAL
     Route: 048
     Dates: start: 20030615, end: 20031210
  11. THIOCOLCHICOSIDE (THIOCOLCHICOSIDE,  , 0) [Suspect]
     Dosage: ORAL
     Route: 048
     Dates: start: 20030615, end: 20031210
  12. TILCOTIL (TENOXICAM,  , 0) [Suspect]
     Dosage: ORAL
     Route: 048
     Dates: start: 20030615, end: 20031210
  13. TROSPIUM CHLORIDE [Suspect]
     Dosage: ORAL
     Route: 048
     Dates: start: 20031103, end: 20031210

REACTIONS (6)
  - ACUTE PRERENAL FAILURE [None]
  - ANURIA [None]
  - BILATERAL HYDRONEPHROSIS [None]
  - HAEMORRHAGE [None]
  - HYDRONEPHROSIS [None]
  - THROMBOCYTOPENIA [None]
